FAERS Safety Report 7038116-6 (Version None)
Quarter: 2010Q4

REPORT INFORMATION
  Report Type: 
  Country: None (occurrence: None)
  Receive Date: 20101011
  Receipt Date: 20100928
  Transmission Date: 20110411
  Serious: Yes (Hospitalization)
  Sender: FDA-Public Use
  Company Number: US-WATSON-2010-13125

PATIENT
  Age: 78 Year
  Sex: Female

DRUGS (2)
  1. LIDOCAINE HYDROCHLORIDE (WATSON LABORATORIES) [Suspect]
     Indication: LOCAL ANAESTHESIA
     Dosage: 2% VISCOUS
     Route: 061
  2. BENZOCAINE [Suspect]
     Indication: LOCAL ANAESTHESIA
     Dosage: 1 SPRAY OF 20% FOR ONE SECOND
     Route: 061

REACTIONS (1)
  - METHAEMOGLOBINAEMIA [None]
